FAERS Safety Report 8955897 (Version 4)
Quarter: 2014Q1

REPORT INFORMATION
  Report Type: Spontaneous
  Country: IT (occurrence: IT)
  Receive Date: 20121210
  Receipt Date: 20140103
  Transmission Date: 20141002
  Serious: Yes (Life-Threatening, Hospitalization)
  Sender: FDA-Public Use
  Company Number: IT-009507513-1212ITA002677

PATIENT
  Age: 48 Year
  Sex: Female

DRUGS (2)
  1. NEXPLANON [Suspect]
     Indication: CONTRACEPTION
     Dosage: UNK
     Route: 058
     Dates: start: 20120503, end: 20121015
  2. NEXPLANON [Suspect]
     Indication: MENOMETRORRHAGIA

REACTIONS (3)
  - Anaemia [Recovered/Resolved with Sequelae]
  - Metrorrhagia [Recovered/Resolved with Sequelae]
  - Metrorrhagia [Recovering/Resolving]
